FAERS Safety Report 8610289 (Version 2)
Quarter: 2014Q3

REPORT INFORMATION
  Report Type: Spontaneous
  Country: US (occurrence: US)
  Receive Date: 20120612
  Receipt Date: 20140721
  Transmission Date: 20150326
  Serious: Yes (Other)
  Sender: FDA-Public Use
  Company Number: US-PFIZER INC-2012136275

PATIENT
  Age: 13 Month
  Sex: Male

DRUGS (2)
  1. ZITHROMAX [Suspect]
     Active Substance: AZITHROMYCIN DIHYDRATE
     Indication: OTITIS MEDIA ACUTE
     Dosage: UNK
  2. AUGMENTIN [Concomitant]
     Active Substance: AMOXICILLIN\CLAVULANATE POTASSIUM
     Indication: OTITIS MEDIA ACUTE

REACTIONS (4)
  - Atrioventricular block complete [Recovered/Resolved]
  - Hypersensitivity [Unknown]
  - Tachycardia [Recovered/Resolved]
  - Eosinophilic myocarditis [Recovered/Resolved]
